FAERS Safety Report 8223842-3 (Version None)
Quarter: 2012Q1

REPORT INFORMATION
  Report Type: 
  Country: None (occurrence: None)
  Receive Date: 20120321
  Receipt Date: 20120314
  Transmission Date: 20120608
  Serious: Yes (Hospitalization, Other)
  Sender: FDA-Public Use
  Company Number: IT-SHIRE-ALL1-2012-01161

PATIENT
  Age: 43 Year
  Sex: Male

DRUGS (14)
  1. AZATHIOPRINE [Concomitant]
     Indication: COLITIS ULCERATIVE
     Dosage: 100 MG, UNKNOWN
     Route: 065
     Dates: start: 20110621, end: 20110725
  2. CORTICOSTEROIDS [Concomitant]
     Dosage: UNK, UNKNOWN
     Route: 065
     Dates: start: 20110726
  3. MESALAMINE [Suspect]
     Indication: COLITIS ULCERATIVE
     Dosage: 3600 MG, 1X/DAY:QD
     Route: 048
     Dates: start: 20110622, end: 20110801
  4. FACTOR IX COMPLEX [Concomitant]
     Indication: HAEMARTHROSIS
     Dosage: 4000 IU, OTHER (FOR TWO WEEKS)
     Route: 065
  5. CORTICOSTEROIDS [Concomitant]
     Dosage: UNK, UNKNOWN
     Route: 065
     Dates: start: 20111007
  6. AZATHIOPRINE [Concomitant]
     Dosage: 125 MG, UNKNOWN
     Route: 065
     Dates: start: 20111101
  7. METHYLPREDNISOLONE [Concomitant]
     Dosage: 40 MG, UNKNOWN
     Route: 048
  8. AZATHIOPRINE [Concomitant]
     Dosage: 150 MG, 1X/DAY:QD
     Route: 065
     Dates: start: 20110726, end: 20111001
  9. CORTICOSTEROIDS [Concomitant]
     Indication: PRODUCT USED FOR UNKNOWN INDICATION
     Dosage: UNK, UNKNOWN
     Route: 065
  10. METHYLPREDNISOLONE [Concomitant]
     Indication: PRODUCT USED FOR UNKNOWN INDICATION
     Dosage: 4 MG, 1X/DAY:QD
     Route: 065
  11. METHYLPREDNISOLONE [Concomitant]
     Dosage: 8 MG, 1X/DAY:QD
     Route: 065
  12. CORTICOSTEROIDS [Concomitant]
     Dosage: UNK, UNKNOWN
     Route: 065
     Dates: start: 20111028
  13. MESALAMINE [Suspect]
     Dosage: 4800 MG, 1X/DAY:QD
     Route: 048
     Dates: start: 20110802, end: 20111004
  14. FACTOR IX COMPLEX [Concomitant]
     Dosage: 4000 IU, OTHER (3 TIME/WEEK)
     Route: 065

REACTIONS (1)
  - INTESTINAL HAEMORRHAGE [None]
